FAERS Safety Report 19007959 (Version 1)
Quarter: 2021Q1

REPORT INFORMATION
  Report Type: Report from Study
  Country: JP (occurrence: JP)
  Receive Date: 20210315
  Receipt Date: 20210315
  Transmission Date: 20210420
  Serious: Yes (Other)
  Sender: FDA-Public Use
  Company Number: JP-TEVA-2021-JP-1887666

PATIENT
  Age: 66 Year
  Sex: Female

DRUGS (4)
  1. PARACETAMOL [Concomitant]
     Active Substance: ACETAMINOPHEN
     Indication: POSTOPERATIVE ANALGESIA
     Route: 065
  2. WARFARIN [Suspect]
     Active Substance: WARFARIN
     Indication: ANTICOAGULANT THERAPY
     Dosage: 4 MILLIGRAM DAILY;
     Route: 065
  3. AMPICILLIN [Interacting]
     Active Substance: AMPICILLIN
     Indication: ENDOCARDITIS PROPHYLAXIS
     Dosage: THE DAY BEFORE TOOTH EXTRACTION
     Route: 065
  4. AMOXICILLIN. [Interacting]
     Active Substance: AMOXICILLIN
     Indication: INFECTION PROPHYLAXIS
     Dosage: 750 MILLIGRAM DAILY;
     Route: 065

REACTIONS (3)
  - International normalised ratio increased [Unknown]
  - Post procedural haemorrhage [Unknown]
  - Drug interaction [Unknown]
